FAERS Safety Report 5331810-4 (Version None)
Quarter: 2007Q2

REPORT INFORMATION
  Report Type: 
  Country: None (occurrence: None)
  Receive Date: 20070518
  Receipt Date: 20070504
  Transmission Date: 20071010
  Serious: No
  Sender: FDA-Public Use
  Company Number: 8022655

PATIENT
  Age: 68 Year

DRUGS (8)
  1. KEPPRA [Suspect]
     Indication: EPILEPSY
     Dosage: 1500 MG /D PO
     Route: 048
     Dates: start: 20070118, end: 20070121
  2. LOVENOX [Suspect]
     Dates: end: 20070118
  3. SOLU-MEDROL [Concomitant]
  4. AXEPIM [Concomitant]
  5. BIONOLYTE [Concomitant]
  6. DEROXAT [Concomitant]
  7. OMEPRAZOLE [Concomitant]
  8. TEMODAL [Concomitant]

REACTIONS (4)
  - BONE MARROW FAILURE [None]
  - HAEMATURIA [None]
  - HEPARIN-INDUCED THROMBOCYTOPENIA [None]
  - HYPOTHERMIA [None]
